FAERS Safety Report 16322778 (Version 4)
Quarter: 2022Q1

REPORT INFORMATION
  Report Type: Report from Study
  Country: US (occurrence: US)
  Receive Date: 20190516
  Receipt Date: 20220210
  Transmission Date: 20220423
  Serious: No
  Sender: FDA-Public Use
  Company Number: US-KYOWAKIRIN-2019BKK000884

PATIENT

DRUGS (5)
  1. CRYSVITA [Suspect]
     Active Substance: BUROSUMAB-TWZA
     Indication: Hereditary hypophosphataemic rickets
     Dosage: 90 MG, 1X/4 WEEKS
     Route: 058
     Dates: start: 20180926
  2. CRYSVITA [Suspect]
     Active Substance: BUROSUMAB-TWZA
     Dosage: 120 MG, ONCE EVERY 4 WEEKS
     Route: 058
  3. CRYSVITA [Suspect]
     Active Substance: BUROSUMAB-TWZA
     Dosage: 120 MG, ONCE EVERY 4 WEEKS
     Route: 058
     Dates: start: 20180918
  4. CRYSVITA [Suspect]
     Active Substance: BUROSUMAB-TWZA
     Dosage: 120 MG, 1X/4 WEEKS (30MG (4 INJECTIONS))
     Route: 058
     Dates: start: 2019
  5. CRYSVITA [Suspect]
     Active Substance: BUROSUMAB-TWZA
     Dosage: 120 MG, 1X/4 WEEKS (30MG (4 INJECTIONS))
     Route: 058

REACTIONS (6)
  - Abdominal pain [Recovered/Resolved]
  - Blood parathyroid hormone increased [Unknown]
  - Urine calcium increased [Recovered/Resolved]
  - Creatinine urine increased [Recovered/Resolved]
  - Urine calcium decreased [Unknown]
  - Overdose [Not Recovered/Not Resolved]

NARRATIVE: CASE EVENT DATE: 20181012
